FAERS Safety Report 14567364 (Version 1)
Quarter: 2018Q1

REPORT INFORMATION
  Report Type: Spontaneous
  Country: US (occurrence: US)
  Receive Date: 20180223
  Receipt Date: 20180223
  Transmission Date: 20180509
  Serious: Yes (Death, Hospitalization, Other)
  Sender: FDA-Public Use
  Company Number: US-AUROBINDO-AUR-APL-2018-008636

PATIENT
  Age: 74 Year
  Sex: Female

DRUGS (1)
  1. PREDNISONE. [Suspect]
     Active Substance: PREDNISONE
     Indication: TEMPORAL ARTERITIS
     Dosage: 80 MG, DAILY

REACTIONS (39)
  - Soft tissue sarcoma [Fatal]
  - Infection [Unknown]
  - Septic shock [Unknown]
  - Asthenia [Unknown]
  - Dyspnoea [Unknown]
  - Depression [Unknown]
  - Anger [Unknown]
  - Adenocarcinoma of colon [Fatal]
  - Abnormal behaviour [Unknown]
  - Cushingoid [Unknown]
  - Osteoporosis [Unknown]
  - Fistula [Unknown]
  - Pneumonia [Unknown]
  - Vomiting [Unknown]
  - Enteritis [Unknown]
  - Gait disturbance [Unknown]
  - Condition aggravated [Unknown]
  - Memory impairment [Unknown]
  - Fatigue [Unknown]
  - Disorientation [Unknown]
  - Osteopenia [Unknown]
  - Sepsis [Unknown]
  - Pain in extremity [Unknown]
  - Aggression [Unknown]
  - Confusional state [Unknown]
  - Neoplasm malignant [Unknown]
  - Chronic obstructive pulmonary disease [Unknown]
  - Suicidal ideation [Unknown]
  - Urinary tract infection [Unknown]
  - Headache [Unknown]
  - Diarrhoea [Unknown]
  - Aortic stenosis [Unknown]
  - Eye pain [Unknown]
  - Oedema peripheral [Unknown]
  - Balance disorder [Unknown]
  - Lung adenocarcinoma [Unknown]
  - Polymyalgia rheumatica [Unknown]
  - Hypotension [Unknown]
  - Acidosis [Unknown]

NARRATIVE: CASE EVENT DATE: 20160210
